FAERS Safety Report 24797609 (Version 3)
Quarter: 2025Q2

REPORT INFORMATION
  Report Type: Report from Study
  Country: US (occurrence: US)
  Receive Date: 20250102
  Receipt Date: 20250403
  Transmission Date: 20250717
  Serious: No
  Sender: DECIPHERA PHARMACEUTICALS
  Company Number: US-DECIPHERA PHARMACEUTICALS LLC-2024US001041

PATIENT
  Age: 58 Year
  Sex: Male

DRUGS (4)
  1. QINLOCK [Suspect]
     Active Substance: RIPRETINIB
     Indication: Gastrointestinal stromal tumour
     Dosage: 150 MILLIGRAM, QD
     Route: 048
     Dates: start: 20241123, end: 2024
  2. QINLOCK [Suspect]
     Active Substance: RIPRETINIB
     Dosage: 100 MILLIGRAM, QD
     Route: 048
     Dates: start: 2024
  3. QINLOCK [Suspect]
     Active Substance: RIPRETINIB
     Dosage: 150 MILLIGRAM, QD (TOOK 3 TABLETS FOR 2 DAYS IN A ROW, AND THEN 2 TABLETS ON THE 3RD DAY)
     Route: 048
     Dates: end: 2024
  4. QINLOCK [Suspect]
     Active Substance: RIPRETINIB
     Dosage: 100 MILLIGRAM, QD (TOOK 3 TABLETS FOR 2 DAYS IN A ROW, AND THEN 2 TABLETS ON THE 3RD DAY)
     Route: 048
     Dates: end: 202501

REACTIONS (22)
  - Pharyngeal swelling [Recovering/Resolving]
  - Dysphagia [Unknown]
  - Influenza like illness [Unknown]
  - Mobility decreased [Unknown]
  - Dizziness [Unknown]
  - Pain [Not Recovered/Not Resolved]
  - Hypersomnia [Unknown]
  - Drug intolerance [Unknown]
  - Neoplasm progression [Unknown]
  - Bone pain [Recovering/Resolving]
  - Eating disorder [Unknown]
  - Hypersensitivity [Unknown]
  - Muscle spasms [Not Recovered/Not Resolved]
  - Pruritus [Unknown]
  - Myalgia [Unknown]
  - Fatigue [Unknown]
  - Alopecia [Unknown]
  - Constipation [Unknown]
  - Weight decreased [Unknown]
  - Tumour pain [Unknown]
  - Drug ineffective [Unknown]
  - Inappropriate schedule of product administration [Unknown]

NARRATIVE: CASE EVENT DATE: 20240101
